FAERS Safety Report 8967371 (Version 1)
Quarter: 2012Q4

REPORT INFORMATION
  Report Type: 
  Country: UA (occurrence: UA)
  Receive Date: 20121214
  Receipt Date: 20121214
  Transmission Date: 20130627
  Serious: Yes (Hospitalization)
  Sender: FDA-Public Use
  Company Number: PHHY2012UA115137

PATIENT
  Age: 21 Year
  Sex: Female

DRUGS (1)
  1. RETARPEN [Suspect]
     Indication: CHRONIC TONSILLITIS
     Dosage: 2400000 IU, QW
     Route: 030
     Dates: start: 20101115, end: 20110115

REACTIONS (4)
  - Visual impairment [Not Recovered/Not Resolved]
  - Dyspnoea [Not Recovered/Not Resolved]
  - Tinnitus [Not Recovered/Not Resolved]
  - Loss of consciousness [None]
